FAERS Safety Report 8536246-0 (Version None)
Quarter: 2012Q3

REPORT INFORMATION
  Report Type: 
  Country: None (occurrence: None)
  Receive Date: 20120725
  Receipt Date: 20120719
  Transmission Date: 20120928
  Serious: Yes (Other)
  Sender: FDA-Public Use
  Company Number: US-PFIZER INC-001-0073-M0000354

PATIENT
  Sex: Female

DRUGS (27)
  1. DILANTIN [Suspect]
     Dosage: 300 MG ALTERNATING WITH 400 MG DAILY
     Route: 048
     Dates: start: 19971101, end: 19981101
  2. DILANTIN [Suspect]
     Dosage: DAILY
     Route: 048
     Dates: start: 19990101, end: 20000101
  3. TYLENOL [Suspect]
     Indication: HEADACHE
     Dosage: UNK
     Route: 065
     Dates: start: 19940901
  4. ZOLOFT [Suspect]
     Dosage: DAILY
     Route: 065
     Dates: end: 19970609
  5. ULTRAM [Concomitant]
     Dosage: UNK
     Dates: start: 19970101
  6. DEPAKOTE [Concomitant]
     Dosage: UNK
     Dates: start: 19990901
  7. NEURONTIN [Concomitant]
  8. DILANTIN [Suspect]
     Dosage: DAILY
     Route: 048
     Dates: start: 19960116
  9. XANAX [Concomitant]
     Dosage: UNK
     Dates: start: 19960101, end: 20000101
  10. DEPAKOTE [Concomitant]
  11. DILANTIN [Suspect]
     Dosage: DAILY
     Route: 048
     Dates: start: 19931023
  12. ZOLOFT [Suspect]
     Dosage: DAILY
     Route: 065
     Dates: start: 19931206
  13. ZOLOFT [Suspect]
     Dosage: 150-200 MG,DAILY
     Route: 065
     Dates: start: 19990224
  14. ZOLOFT [Suspect]
     Dosage: QAM
     Route: 065
     Dates: end: 20000228
  15. KLONOPIN [Concomitant]
     Dosage: UNK
     Dates: start: 19971101, end: 20000201
  16. DILANTIN [Suspect]
     Dosage: 200 MG ALTERNATING WITH 300 MG DAILY
     Route: 048
     Dates: end: 19961023
  17. ZOLOFT [Suspect]
     Indication: HEADACHE
     Dosage: 50-100 MG,DAILY
     Route: 065
     Dates: start: 19930408, end: 19931006
  18. ZOLOFT [Suspect]
     Indication: DEPRESSION
     Dosage: QAM
     Route: 065
     Dates: start: 19931006, end: 19931001
  19. ZOLOFT [Suspect]
     Dosage: DAILY
     Route: 065
     Dates: start: 19970609
  20. VICODIN [Concomitant]
     Dates: start: 19960701
  21. DILANTIN [Suspect]
     Indication: CONVULSION
     Dosage: ONE DOSE
     Route: 048
     Dates: start: 19931022, end: 19931022
  22. ZOLOFT [Suspect]
     Dosage: DAILY
     Route: 065
     Dates: end: 19990224
  23. TYLENOL W/ CODEINE NO. 3 [Concomitant]
     Dosage: UNK
     Dates: start: 19930101
  24. GABITRIL [Concomitant]
  25. LAMICTAL [Concomitant]
  26. DILANTIN [Suspect]
     Dosage: DAILY
     Route: 048
     Dates: start: 19970401, end: 19971101
  27. NORCO [Concomitant]
     Dosage: UNK
     Dates: start: 19980722

REACTIONS (21)
  - APRAXIA [None]
  - CONVULSION [None]
  - TIBIA FRACTURE [None]
  - VOMITING [None]
  - FATIGUE [None]
  - CONFUSIONAL STATE [None]
  - LABORATORY TEST ABNORMAL [None]
  - WEIGHT INCREASED [None]
  - BONE DENSITY DECREASED [None]
  - HEADACHE [None]
  - OEDEMA PERIPHERAL [None]
  - COORDINATION ABNORMAL [None]
  - SLEEP DISORDER [None]
  - HYPOAESTHESIA [None]
  - TREMOR [None]
  - ANXIETY [None]
  - GAMMA-GLUTAMYLTRANSFERASE INCREASED [None]
  - ARTHRALGIA [None]
  - SENSATION OF HEAVINESS [None]
  - DIZZINESS [None]
  - MEMORY IMPAIRMENT [None]
